FAERS Safety Report 25478223 (Version 1)
Quarter: 2025Q2

REPORT INFORMATION
  Report Type: Spontaneous
  Country: US (occurrence: None)
  Receive Date: 20250624
  Receipt Date: 20250624
  Transmission Date: 20250716
  Serious: Yes (Hospitalization)
  Sender: FDA-CTU
  Company Number: None

PATIENT
  Sex: Female

DRUGS (2)
  1. STELARA [Suspect]
     Active Substance: USTEKINUMAB
     Indication: Crohn^s disease
     Route: 058
     Dates: start: 20240210
  2. DEPO-MEDROL INJ [Concomitant]

REACTIONS (5)
  - Crohn^s disease [None]
  - Weight fluctuation [None]
  - Diarrhoea [None]
  - Abdominal pain [None]
  - Impaired quality of life [None]
